FAERS Safety Report 8373803 (Version 2)
Quarter: 2013Q1

REPORT INFORMATION
  Report Type: Report from Study
  Country: US (occurrence: US)
  Receive Date: 20120128
  Receipt Date: 20130129
  Transmission Date: 20140127
  Serious: No
  Sender: FDA-Public Use
  Company Number: US-ABBOTT-11P-163-0850970-00

PATIENT
  Age: 24 Year
  Sex: Male

DRUGS (7)
  1. HUMIRA 40 MG/0.8 ML PEN [Suspect]
     Indication: CROHN^S DISEASE
     Dates: start: 20110810
  2. HUMIRA 40 MG/0.8 ML PEN [Suspect]
  3. EPIDUO [Concomitant]
     Indication: PRODUCT USED FOR UNKNOWN INDICATION
     Route: 061
  4. ERYTHROMYCIN GEL [Concomitant]
     Indication: ACNE
  5. BENTYL [Concomitant]
     Indication: ABDOMINAL PAIN
     Dosage: 10 MG DAILY
  6. ASACOL [Concomitant]
     Indication: CROHN^S DISEASE
  7. MERCAPTOPURINE [Concomitant]
     Indication: CROHN^S DISEASE
     Dosage: 25 MG DAILY

REACTIONS (6)
  - Injection site pain [Recovered/Resolved]
  - Drug effect decreased [Not Recovered/Not Resolved]
  - Injection site pain [Unknown]
  - Injection site haemorrhage [Unknown]
  - Pain [Recovered/Resolved]
  - Paraesthesia [Unknown]
